FAERS Safety Report 5367578-5 (Version None)
Quarter: 2007Q2

REPORT INFORMATION
  Report Type: 
  Country: None (occurrence: None)
  Receive Date: 20070622
  Receipt Date: 20070118
  Transmission Date: 20071010
  Serious: No
  Sender: FDA-Public Use
  Company Number: US-ASTRAZENECA-2006UW24707

PATIENT
  Age: 66 Year
  Sex: Male
  Weight: 68 kg

DRUGS (5)
  1. PULMICORT RESPULES [Suspect]
     Indication: EMPHYSEMA
     Route: 055
     Dates: start: 20061101, end: 20061201
  2. ALBUTEROL [Suspect]
  3. PREDNISONE TAB [Concomitant]
  4. TERAZOSIN HCL [Concomitant]
  5. FORADIL [Concomitant]

REACTIONS (1)
  - DYSPNOEA [None]
